FAERS Safety Report 4422062-8 (Version None)
Quarter: 2004Q3

REPORT INFORMATION
  Report Type: 
  Country: None (occurrence: None)
  Receive Date: 20040809
  Receipt Date: 20040809
  Transmission Date: 20050211
  Serious: Yes (Disabling, Other)
  Sender: FDA-Public Use
  Company Number: None

PATIENT
  Sex: Female
  Weight: 49.8957 kg

DRUGS (1)
  1. CIPRO [Suspect]
     Indication: URINARY TRACT INFECTION
     Dosage: 2 A DAY ORAL
     Route: 048
     Dates: start: 20040430, end: 20040505

REACTIONS (9)
  - DEMYELINATION [None]
  - MULTIPLE SCLEROSIS [None]
  - NEUROPATHY [None]
  - OEDEMA [None]
  - PURPURA [None]
  - SERUM SICKNESS [None]
  - SUNBURN [None]
  - SYSTEMIC LUPUS ERYTHEMATOSUS [None]
  - VASCULITIS [None]
